FAERS Safety Report 5513948-1 (Version None)
Quarter: 2007Q4

REPORT INFORMATION
  Report Type: 
  Country: None (occurrence: None)
  Receive Date: 20071113
  Receipt Date: 20071102
  Transmission Date: 20080405
  Serious: Yes (Other)
  Sender: FDA-Public Use
  Company Number: FR-BRISTOL-MYERS SQUIBB COMPANY-13977608

PATIENT
  Age: 68 Year
  Sex: Female

DRUGS (9)
  1. GLUCOPHAGE [Suspect]
     Indication: TYPE 2 DIABETES MELLITUS
     Route: 048
  2. ACTOS [Suspect]
     Indication: TYPE 2 DIABETES MELLITUS
     Dosage: DOSE: 30 MG; TABLET
     Dates: start: 20060201
  3. AMARYL [Suspect]
     Indication: TYPE 2 DIABETES MELLITUS
     Route: 048
  4. ZOCOR [Suspect]
     Indication: DYSLIPIDAEMIA
     Dosage: DOSE: 20 MG;  TABLET
     Route: 048
  5. ACUITEL [Suspect]
     Dosage: DOSE: 20 MG; TABLET
     Route: 048
  6. INDAPAMIDE [Suspect]
     Dosage: DOSE: 1.5 MG; TABLET
     Route: 048
  7. BACLOFEN [Suspect]
     Route: 048
  8. MYOLASTAN [Suspect]
  9. AMPECYCLAL [Suspect]
     Dosage: DOSE: 300 MG; CAPSULE
     Route: 048

REACTIONS (1)
  - PATHOLOGICAL FRACTURE [None]
